FAERS Safety Report 18880518 (Version 2)
Quarter: 2021Q1

REPORT INFORMATION
  Report Type: Spontaneous
  Country: US (occurrence: US)
  Receive Date: 20210211
  Receipt Date: 20210301
  Transmission Date: 20210420
  Serious: No
  Sender: FDA-Public Use
  Company Number: US-STRONGBRIDGE BIOPHARMA-2021-STR-000032

PATIENT
  Sex: Female

DRUGS (1)
  1. KEVEYIS [Suspect]
     Active Substance: DICHLORPHENAMIDE
     Indication: FAMILIAL PERIODIC PARALYSIS
     Dosage: 1 TABLET IN THE MORNING AND 2 TABLETS IN THE EVENING
     Route: 048

REACTIONS (5)
  - Insomnia [Unknown]
  - Loss of dreaming [Unknown]
  - Fatigue [Unknown]
  - Constipation [Unknown]
  - Paraesthesia [Unknown]
